FAERS Safety Report 8232939-3 (Version None)
Quarter: 2012Q1

REPORT INFORMATION
  Report Type: 
  Country: None (occurrence: None)
  Receive Date: 20120325
  Receipt Date: 20120314
  Transmission Date: 20120608
  Serious: Yes (Death, Hospitalization, Other)
  Sender: FDA-Public Use
  Company Number: US-MYLANLABS-2012S1006246

PATIENT
  Sex: Male

DRUGS (1)
  1. DIGOXIN [Suspect]
     Route: 048
     Dates: start: 20060301, end: 20080601

REACTIONS (9)
  - DEATH [None]
  - CARDIAC DISORDER [None]
  - HOSPITALISATION [None]
  - PAIN [None]
  - ANXIETY [None]
  - INJURY [None]
  - ILL-DEFINED DISORDER [None]
  - EMOTIONAL DISTRESS [None]
  - ECONOMIC PROBLEM [None]
